FAERS Safety Report 16306347 (Version 1)
Quarter: 2019Q2

REPORT INFORMATION
  Report Type: Spontaneous
  Country: FR (occurrence: FR)
  Receive Date: 20190513
  Receipt Date: 20190513
  Transmission Date: 20190711
  Serious: Yes (Hospitalization)
  Sender: FDA-Public Use
  Company Number: FR-MYLANLABS-2019M1044466

PATIENT
  Age: 45 Year
  Sex: Male
  Weight: 117 kg

DRUGS (3)
  1. OXYCONTIN [Suspect]
     Active Substance: OXYCODONE HYDROCHLORIDE
     Indication: PAIN
     Dosage: 160 MILLIGRAM, QD
     Route: 048
     Dates: start: 2016
  2. CLOMIPRAMINE [Suspect]
     Active Substance: CLOMIPRAMINE
     Indication: PAIN
     Dosage: 150 MILLIGRAM, QD
     Route: 048
     Dates: start: 2016
  3. SEVREDOL [Suspect]
     Active Substance: MORPHINE
     Indication: PAIN
     Dosage: 440 MILLIGRAM, QD
     Route: 048
     Dates: start: 2016

REACTIONS (1)
  - Drug abuse [Not Recovered/Not Resolved]

NARRATIVE: CASE EVENT DATE: 2016
